FAERS Safety Report 9539421 (Version 1)
Quarter: 2013Q2

REPORT INFORMATION
  Report Type: Spontaneous
  Country: US (occurrence: None)
  Receive Date: 20130507
  Receipt Date: 20130507
  Transmission Date: 20140414
  Serious: No
  Sender: FDA-Public Use
  Company Number: PHEH2013US004195

PATIENT
  Age: 52 Year
  Sex: Female

DRUGS (5)
  1. AFINITOR [Suspect]
     Indication: TUBEROUS SCLEROSIS
     Route: 048
     Dates: start: 201301
  2. CETIRIZINE ( CETIRIZINE) [Concomitant]
  3. FLUTICASONE ( FLUTICASONE) [Concomitant]
  4. ZOLPIDEM ( ZOLPIDEM) [Concomitant]
  5. METHYLPHENIDATE ( METHYLPHENIDATE) [Concomitant]

REACTIONS (1)
  - Epistaxis [None]
